FAERS Safety Report 15945253 (Version 1)
Quarter: 2019Q1

REPORT INFORMATION
  Report Type: Spontaneous
  Country: US (occurrence: US)
  Receive Date: 20190211
  Receipt Date: 20190211
  Transmission Date: 20190417
  Serious: Yes (Death)
  Sender: FDA-Public Use
  Company Number: None

PATIENT
  Age: 25 Year
  Sex: Male

DRUGS (3)
  1. KRATOM [Suspect]
     Active Substance: HERBALS\MITRAGYNINE
     Indication: PHYTOTHERAPY
  2. DMAA [Suspect]
     Active Substance: METHYLHEXANEAMINE
     Indication: PRODUCT USED FOR UNKNOWN INDICATION
  3. SELEGILINE [Concomitant]
     Active Substance: SELEGILINE

REACTIONS (1)
  - Death [None]

NARRATIVE: CASE EVENT DATE: 20170202
